FAERS Safety Report 9392461 (Version 3)
Quarter: 2013Q4

REPORT INFORMATION
  Report Type: Spontaneous
  Country: US (occurrence: US)
  Receive Date: 20130710
  Receipt Date: 20131111
  Transmission Date: 20140711
  Serious: Yes (Hospitalization)
  Sender: FDA-Public Use
  Company Number: US-BAYER-2013-081901

PATIENT
  Age: 21 Year
  Sex: Female
  Weight: 75.28 kg

DRUGS (8)
  1. MIRENA [Suspect]
     Indication: CONTRACEPTION
     Dosage: 20 MCG/24HR, CONT
     Route: 015
     Dates: start: 20120227, end: 20120424
  2. ZOLOFT [Concomitant]
     Dosage: 50 MG, DAILY
     Route: 048
  3. PROZAC [Concomitant]
  4. CELEXA [Concomitant]
  5. NUVARING [Concomitant]
     Dosage: UNK
     Dates: start: 2012
  6. PRENATAL VITAMINS [VIT C,B5,B12,D2,B3,B6,RETINOL PALMIT,B2,B1 MONO [Concomitant]
     Dosage: UNK
     Route: 048
  7. METROGEL [Concomitant]
     Dosage: UNK
  8. XANAX [Concomitant]
     Dosage: 1 MG, ? TABLET QHS
     Route: 048

REACTIONS (8)
  - Uterine perforation [None]
  - Injury [None]
  - Emotional distress [None]
  - Abdominal pain upper [None]
  - Post procedural discharge [None]
  - Depression [None]
  - Anxiety [None]
  - Device issue [None]
